FAERS Safety Report 6539820-6 (Version None)
Quarter: 2010Q1

REPORT INFORMATION
  Report Type: 
  Country: None (occurrence: None)
  Receive Date: 20100115
  Receipt Date: 20100107
  Transmission Date: 20100710
  Serious: Yes (Other)
  Sender: FDA-Public Use
  Company Number: US-JNJFOC-20100102799

PATIENT
  Sex: Female

DRUGS (6)
  1. TOPAMAX [Suspect]
     Indication: MIGRAINE PROPHYLAXIS
     Route: 048
  2. TOPAMAX [Suspect]
     Route: 048
  3. TOPIRAMATE [Suspect]
     Indication: MIGRAINE PROPHYLAXIS
     Route: 048
  4. TOPIRAMATE [Suspect]
     Route: 048
  5. SYNTHROID [Suspect]
     Indication: THYROID DISORDER
  6. TEGRETOL [Concomitant]
     Indication: NEURALGIA

REACTIONS (7)
  - HYPERHIDROSIS [None]
  - HYPERPYREXIA [None]
  - HYPERTENSION [None]
  - PALPITATIONS [None]
  - RAYNAUD'S PHENOMENON [None]
  - TACHYCARDIA [None]
  - THYROXINE INCREASED [None]
